FAERS Safety Report 25221358 (Version 1)
Quarter: 2025Q2

REPORT INFORMATION
  Report Type: Spontaneous
  Country: IN (occurrence: IN)
  Receive Date: 20250421
  Receipt Date: 20250421
  Transmission Date: 20250716
  Serious: Yes (Other)
  Sender: PFIZER
  Company Number: IN-PFIZER INC-PV202200006521

PATIENT
  Age: 44 Year
  Sex: Male

DRUGS (6)
  1. LORLATINIB [Suspect]
     Active Substance: LORLATINIB
     Indication: Non-small cell lung cancer metastatic
     Dosage: 100 MG, 1X/DAY
     Route: 048
  2. ROSUVASTATIN CALCIUM [Concomitant]
     Active Substance: ROSUVASTATIN CALCIUM
     Dosage: 40 MG, 1X/DAY (BED TIME)
  3. FENOFIBRATE [Concomitant]
     Active Substance: FENOFIBRATE
     Dosage: 40 MG, 1X/DAY
  4. FENOFIBRATE [Concomitant]
     Active Substance: FENOFIBRATE
     Dosage: 160 MG, 1X/DAY
  5. CALCIROL [COLECALCIFEROL] [Concomitant]
     Dosage: UNK, MONTHLY
  6. CALCIROL [COLECALCIFEROL] [Concomitant]

REACTIONS (21)
  - Metastases to central nervous system [Unknown]
  - Thoracic vertebral fracture [Unknown]
  - Blood bilirubin increased [Unknown]
  - Blood thyroid stimulating hormone increased [Unknown]
  - Blood iron decreased [Unknown]
  - Glycosylated haemoglobin increased [Unknown]
  - Sinusitis [Unknown]
  - Low density lipoprotein increased [Unknown]
  - Vitamin D decreased [Unknown]
  - Haemoglobin decreased [Recovering/Resolving]
  - Full blood count abnormal [Unknown]
  - Vitamin D increased [Unknown]
  - Weight fluctuation [Unknown]
  - Blood albumin decreased [Unknown]
  - Aspartate aminotransferase increased [Unknown]
  - Blood creatinine increased [Unknown]
  - Blood alkaline phosphatase increased [Unknown]
  - Blood glucose increased [Unknown]
  - Blood cholesterol increased [Recovering/Resolving]
  - Blood triglycerides increased [Unknown]
  - Spinal osteoarthritis [Unknown]

NARRATIVE: CASE EVENT DATE: 20220303
